FAERS Safety Report 16740709 (Version 4)
Quarter: 2019Q4

REPORT INFORMATION
  Report Type: Spontaneous
  Country: JP (occurrence: JP)
  Receive Date: 20190826
  Receipt Date: 20191122
  Transmission Date: 20200122
  Serious: Yes (Hospitalization, Other)
  Sender: FDA-Public Use
  Company Number: JP-009507513-1905JPN000255J

PATIENT
  Age: 73 Year
  Sex: Male

DRUGS (1)
  1. KEYTRUDA [Suspect]
     Active Substance: PEMBROLIZUMAB
     Indication: NON-SMALL CELL LUNG CANCER
     Dosage: 200 MILLIGRAM, Q3W
     Route: 041
     Dates: start: 201806, end: 2019

REACTIONS (2)
  - Fulminant type 1 diabetes mellitus [Unknown]
  - Bladder cancer recurrent [Unknown]

NARRATIVE: CASE EVENT DATE: 2019
